FAERS Safety Report 20743618 (Version 1)
Quarter: 2022Q2

REPORT INFORMATION
  Report Type: Spontaneous
  Country: SE (occurrence: SE)
  Receive Date: 20220425
  Receipt Date: 20220425
  Transmission Date: 20220721
  Serious: Yes (Other)
  Sender: FDA-Public Use
  Company Number: SE-MYLANLABS-2022M1027005

PATIENT
  Age: 59 Year
  Sex: Male

DRUGS (4)
  1. AZACITIDINE [Suspect]
     Active Substance: AZACITIDINE
     Indication: Myeloproliferative neoplasm
     Dosage: 100 MILLIGRAM/SQ. METER, CYCLE(FOR 5 DAYS IN A CYCLE;RECEIVED ONE CYCLE)?MONOTHERAPY DOSAGE NOT STAT
     Route: 065
  2. AZACITIDINE [Suspect]
     Active Substance: AZACITIDINE
     Indication: Myelodysplastic syndrome
  3. VENETOCLAX [Suspect]
     Active Substance: VENETOCLAX
     Indication: Myelodysplastic syndrome
     Dosage: 200 MILLIGRAM, CYCLE(FOR 7 DAYS IN A CYCLE;RECEIVED ONE CYCLE)
     Route: 065
  4. VENETOCLAX [Suspect]
     Active Substance: VENETOCLAX
     Indication: Myeloproliferative neoplasm

REACTIONS (3)
  - Cytomegalovirus infection reactivation [Unknown]
  - Therapeutic response decreased [Unknown]
  - Intentional product use issue [Unknown]
